FAERS Safety Report 5889676-X (Version None)
Quarter: 2008Q3

REPORT INFORMATION
  Report Type: 
  Country: None (occurrence: None)
  Receive Date: 20080919
  Receipt Date: 20080912
  Transmission Date: 20090109
  Serious: Yes (Hospitalization)
  Sender: FDA-Public Use
  Company Number: AU-JNJFOC-20080800830

PATIENT
  Sex: Female
  Weight: 90 kg

DRUGS (2)
  1. PALIPERIDONE [Suspect]
     Route: 048
  2. PALIPERIDONE [Suspect]
     Indication: SCHIZOPHRENIA
     Route: 048

REACTIONS (3)
  - HALLUCINATION, AUDITORY [None]
  - SCHIZOAFFECTIVE DISORDER [None]
  - SUICIDAL IDEATION [None]
